FAERS Safety Report 7026999-5 (Version None)
Quarter: 2010Q4

REPORT INFORMATION
  Report Type: 
  Country: None (occurrence: None)
  Receive Date: 20101004
  Receipt Date: 20100922
  Transmission Date: 20110411
  Serious: Yes (Hospitalization)
  Sender: FDA-Public Use
  Company Number: GB-JNJFOC-20100907322

PATIENT
  Age: 59 Year
  Sex: Male
  Weight: 84 kg

DRUGS (4)
  1. REMICADE [Suspect]
     Indication: CROHN'S DISEASE
     Route: 042
  2. METHOTREXATE [Concomitant]
     Indication: CROHN'S DISEASE
     Route: 048
  3. AMITRIPTYLINE [Concomitant]
     Indication: DEPRESSION
  4. VENLAFAXINE HCL [Concomitant]
     Indication: DEPRESSION

REACTIONS (1)
  - MAJOR DEPRESSION [None]
